FAERS Safety Report 8246523-9 (Version None)
Quarter: 2012Q1

REPORT INFORMATION
  Report Type: 
  Country: None (occurrence: None)
  Receive Date: 20120330
  Receipt Date: 20120322
  Transmission Date: 20120608
  Serious: Yes (Other)
  Sender: FDA-Public Use
  Company Number: JP-BRISTOL-MYERS SQUIBB COMPANY-16472730

PATIENT
  Sex: Female

DRUGS (2)
  1. NESINA [Suspect]
     Route: 048
  2. METFORMIN HCL [Suspect]
     Indication: TYPE 2 DIABETES MELLITUS
     Route: 048

REACTIONS (4)
  - DIZZINESS [None]
  - MENTAL IMPAIRMENT [None]
  - TREMOR [None]
  - NAUSEA [None]
